FAERS Safety Report 4550940-8 (Version None)
Quarter: 2004Q4

REPORT INFORMATION
  Report Type: 
  Country: None (occurrence: None)
  Receive Date: 20041217
  Receipt Date: 20040820
  Transmission Date: 20050328
  Serious: No
  Sender: FDA-Public Use
  Company Number: 2004-BP-07078BP(0)

PATIENT
  Sex: Female

DRUGS (9)
  1. SPIRIVA [Suspect]
     Indication: CHRONIC OBSTRUCTIVE AIRWAYS DISEASE
     Dosage: 18 MCG(18 MCG, ONCE DAILY)L, IH
     Route: 055
     Dates: start: 20040601
  2. SPIRIVA [Suspect]
  3. ADVAIR (SERETIDE MITE) [Concomitant]
  4. LIPITOR [Concomitant]
  5. CELEBREX [Concomitant]
  6. DIOVAN [Concomitant]
  7. ZOLOFT [Concomitant]
  8. SYNTHROID [Concomitant]
  9. DILTIAZEM [Concomitant]

REACTIONS (3)
  - DRY MOUTH [None]
  - FACE OEDEMA [None]
  - WEIGHT INCREASED [None]
